FAERS Safety Report 12826247 (Version 1)
Quarter: 2016Q4

REPORT INFORMATION
  Report Type: Spontaneous
  Country: US (occurrence: US)
  Receive Date: 20161006
  Receipt Date: 20161006
  Transmission Date: 20170207
  Serious: No
  Sender: FDA-Public Use
  Company Number: US-JAZZ-2016-US-012622

PATIENT
  Age: 60 Year
  Sex: Female

DRUGS (18)
  1. NUVIGIL [Concomitant]
     Active Substance: ARMODAFINIL
  2. GLUCOSAMINE SULFATE [Concomitant]
     Active Substance: GLUCOSAMINE SULFATE
  3. SOTALOL. [Concomitant]
     Active Substance: SOTALOL
  4. VITAMIN C [Concomitant]
     Active Substance: ASCORBIC ACID
  5. XYREM [Suspect]
     Active Substance: SODIUM OXYBATE
     Dosage: 3 G, BID
     Route: 048
     Dates: start: 201402, end: 201402
  6. ECOTRIN [Concomitant]
     Active Substance: ASPIRIN
  7. VITAMIN B6 [Concomitant]
     Active Substance: PYRIDOXINE HYDROCHLORIDE
  8. XYREM [Suspect]
     Active Substance: SODIUM OXYBATE
     Dosage: 3.75 G, BID
     Route: 048
     Dates: start: 201402
  9. CENTRUM SILVER [Concomitant]
     Active Substance: MINERALS\VITAMINS
  10. CALCIUM +D [Concomitant]
     Active Substance: CALCIUM\VITAMIN D
  11. FISH OIL [Concomitant]
     Active Substance: FISH OIL
  12. ROPINIROLE HCL [Concomitant]
     Active Substance: ROPINIROLE HYDROCHLORIDE
  13. XYREM [Suspect]
     Active Substance: SODIUM OXYBATE
     Indication: NARCOLEPSY
     Dosage: 2.25 G, BID
     Route: 048
     Dates: start: 201402, end: 201402
  14. GINGER ROOT [Concomitant]
     Active Substance: GINGER
  15. ATORVASTATIN [Concomitant]
     Active Substance: ATORVASTATIN
  16. OMEPRAZOLE. [Concomitant]
     Active Substance: OMEPRAZOLE
  17. DILTZAC [Concomitant]
     Active Substance: DILTIAZEM HYDROCHLORIDE
  18. VITAMIN D [Concomitant]
     Active Substance: CHOLECALCIFEROL

REACTIONS (3)
  - Sleep attacks [Unknown]
  - Fall [Recovered/Resolved]
  - Limb injury [Unknown]

NARRATIVE: CASE EVENT DATE: 20160630
